FAERS Safety Report 8770690 (Version 2)
Quarter: 2012Q4

REPORT INFORMATION
  Report Type: 
  Country: NL (occurrence: NL)
  Receive Date: 20120906
  Receipt Date: 20120906
  Transmission Date: 20130627
  Serious: Yes (Other)
  Sender: FDA-Public Use
  Company Number: PHHY2012NL074933

PATIENT
  Sex: Female
  Weight: 51 kg

DRUGS (11)
  1. ONBREZ [Suspect]
     Indication: CHRONIC OBSTRUCTIVE PULMONARY DISEASE
     Dosage: 300 mg, QD
     Dates: start: 20120710, end: 20120801
  2. FORADIL [Suspect]
     Dosage: 12 ug, BID
  3. FLUIMUCIL [Concomitant]
     Dosage: 600 mg, QD
  4. DEXAMETHASONE [Concomitant]
     Dosage: 0.5 mg, BID
  5. SPIRIVA [Concomitant]
     Dosage: 2.5 ug, BID
  6. ALVESCO [Concomitant]
     Dosage: 160 ug,
  7. ATROVENT [Concomitant]
     Dosage: 20 ug,
  8. SPIRONOLACTONE [Concomitant]
     Dosage: 25 mg, QD
  9. OXAZEPAM [Concomitant]
     Dosage: 10 mg, QD
  10. CALCICHEW [Concomitant]
     Dosage: 1 DF, QD
  11. FUROSEMIDE [Concomitant]
     Dosage: 40 mg, QD

REACTIONS (4)
  - Fibroma [Unknown]
  - Tongue pigmentation [Not Recovered/Not Resolved]
  - Glossodynia [Unknown]
  - Muscle spasms [Recovered/Resolved]
